FAERS Safety Report 24426846 (Version 1)
Quarter: 2024Q4

REPORT INFORMATION
  Report Type: Report from Study
  Country: US (occurrence: US)
  Receive Date: 20241011
  Receipt Date: 20241011
  Transmission Date: 20250115
  Serious: Yes (Hospitalization)
  Sender: ROCHE
  Company Number: US-ROCHE-10000099412

PATIENT
  Age: 81 Year
  Sex: Female

DRUGS (1)
  1. ESBRIET [Suspect]
     Active Substance: PIRFENIDONE
     Indication: Idiopathic interstitial pneumonia
     Dosage: TAKE 1 TABLET BY MOUTH 3 TIMES A DAY WITH MEALS
     Route: 048

REACTIONS (3)
  - Hand fracture [Recovering/Resolving]
  - Urinary tract infection [Unknown]
  - Femur fracture [Unknown]
